FAERS Safety Report 10737758 (Version 1)
Quarter: 2015Q1

REPORT INFORMATION
  Report Type: Spontaneous
  Country: NL (occurrence: None)
  Receive Date: 20150122
  Receipt Date: 20150122
  Transmission Date: 20150721
  Serious: Yes (Hospitalization)
  Sender: FDA-Public Use
  Company Number: 2015FE00042

PATIENT
  Age: 72 Year
  Sex: Male

DRUGS (7)
  1. NOVORAPID [Concomitant]
     Active Substance: INSULIN ASPART
  2. ASCAL (ACETYLSALICYLATE CALCIUM) [Concomitant]
  3. SIMVASTATINE (SIMVASTATIN) [Concomitant]
  4. PICOPREP [Suspect]
     Active Substance: CITRIC ACID MONOHYDRATE\MAGNESIUM OXIDE\SODIUM PICOSULFATE
     Indication: COLONIC LAVAGE
     Route: 048
     Dates: start: 20141214
  5. LACTULOSE. [Concomitant]
     Active Substance: LACTULOSE
  6. GLUCAGEN HYPOKIT (GLUCAGON HYDROCHLORIDE) [Concomitant]
  7. LANTUS [Concomitant]
     Active Substance: INSULIN GLARGINE

REACTIONS (7)
  - Hyponatraemia [None]
  - Headache [None]
  - Nausea [None]
  - Malaise [None]
  - Blood pressure increased [None]
  - Muscle spasms [None]
  - Chest pain [None]

NARRATIVE: CASE EVENT DATE: 20141215
